FAERS Safety Report 20614327 (Version 1)
Quarter: 2022Q1

REPORT INFORMATION
  Report Type: Spontaneous
  Country: GB (occurrence: GB)
  Receive Date: 20220321
  Receipt Date: 20220321
  Transmission Date: 20220424
  Serious: Yes (Congenital Anomaly, Other)
  Sender: FDA-Public Use
  Company Number: GB-ABBVIE-22K-167-4320889-00

PATIENT
  Sex: Female
  Weight: 0.4 kg

DRUGS (1)
  1. VALPROATE SODIUM [Suspect]
     Active Substance: VALPROATE SODIUM
     Indication: Maternal exposure timing unspecified
     Route: 064

REACTIONS (6)
  - Transposition of the great vessels [Unknown]
  - Cardiac disorder [Unknown]
  - Hypoplastic left heart syndrome [Unknown]
  - Developmental delay [Unknown]
  - Spina bifida [Unknown]
  - Foetal exposure during pregnancy [Unknown]
